FAERS Safety Report 18779107 (Version 1)
Quarter: 2021Q1

REPORT INFORMATION
  Report Type: Spontaneous
  Country: FR (occurrence: FR)
  Receive Date: 20210125
  Receipt Date: 20210125
  Transmission Date: 20210419
  Serious: Yes (Hospitalization)
  Sender: FDA-Public Use
  Company Number: FR-SUN PHARMACEUTICAL INDUSTRIES LTD-2021RR-277324

PATIENT
  Age: 17 Year
  Sex: Male

DRUGS (2)
  1. PREGABALIN. [Suspect]
     Active Substance: PREGABALIN
     Indication: SUBSTANCE USE
     Dosage: UNK
     Route: 065
  2. CLOPIXOL [Suspect]
     Active Substance: ZUCLOPENTHIXOL
     Indication: SUBSTANCE USE
     Dosage: 50 GRAM, DAILY
     Route: 048
     Dates: start: 20201108, end: 20201108

REACTIONS (4)
  - Dystonia [Recovered/Resolved]
  - Drug abuse [Not Recovered/Not Resolved]
  - Dysarthria [Recovered/Resolved]
  - Drug use disorder [Not Recovered/Not Resolved]

NARRATIVE: CASE EVENT DATE: 20201109
